FAERS Safety Report 5392914-3 (Version None)
Quarter: 2007Q3

REPORT INFORMATION
  Report Type: 
  Country: None (occurrence: None)
  Receive Date: 20070718
  Receipt Date: 20070615
  Transmission Date: 20080115
  Serious: Yes (Hospitalization, Other)
  Sender: FDA-Public Use
  Company Number: 150-C5013-07020498

PATIENT
  Age: 87 Year
  Sex: Female
  Weight: 51 kg

DRUGS (9)
  1. CC-5013 (LENALIDOMIDE) (CAPSULES) [Suspect]
     Indication: MYELODYSPLASTIC SYNDROME
     Dosage: 70 MG, 1 IN 1 D WK, ORAL; 20 MG, 1 IN 1 WK, ORAL; 5 MG, 1 IN 1 WK, ORAL
     Route: 048
     Dates: end: 20050929
  2. CC-5013 (LENALIDOMIDE) (CAPSULES) [Suspect]
     Indication: MYELODYSPLASTIC SYNDROME
     Dosage: 70 MG, 1 IN 1 D WK, ORAL; 20 MG, 1 IN 1 WK, ORAL; 5 MG, 1 IN 1 WK, ORAL
     Route: 048
     Dates: start: 20050930, end: 20060131
  3. CC-5013 (LENALIDOMIDE) (CAPSULES) [Suspect]
     Indication: MYELODYSPLASTIC SYNDROME
     Dosage: 70 MG, 1 IN 1 D WK, ORAL; 20 MG, 1 IN 1 WK, ORAL; 5 MG, 1 IN 1 WK, ORAL
     Route: 048
     Dates: start: 20060201
  4. WARFARIN SODIUM [Suspect]
     Indication: PULMONARY EMBOLISM
     Dosage: ORAL
     Route: 048
     Dates: start: 19980101
  5. OMEPRAZOLE [Suspect]
     Indication: GASTRITIS
     Dosage: ORAL
     Route: 048
     Dates: start: 20050101
  6. FUROSEMIDE (FUROSEMIDE) (CAPSULES) [Concomitant]
  7. METOPROLOL (METOPROLOL) (TABLETS) [Concomitant]
  8. NITROMEX (GLYCERYL TRINITRATE) (TABLETS) [Concomitant]
  9. LEVOTHYROXINE SODIUM [Concomitant]

REACTIONS (6)
  - ACUTE MYOCARDIAL INFARCTION [None]
  - ATRIAL FIBRILLATION [None]
  - NEUTROPENIA [None]
  - NO THERAPEUTIC RESPONSE [None]
  - SICK SINUS SYNDROME [None]
  - VERTIGO [None]
